FAERS Safety Report 4481650-3 (Version None)
Quarter: 2004Q4

REPORT INFORMATION
  Report Type: 
  Country: None (occurrence: None)
  Receive Date: 20041021
  Receipt Date: 20030929
  Transmission Date: 20050328
  Serious: Yes (Other)
  Sender: FDA-Public Use
  Company Number: US-MERCK-0310USA00080

PATIENT
  Age: 60 Year
  Sex: Female
  Weight: 78 kg

DRUGS (17)
  1. VIOXX [Suspect]
     Indication: ARTHRITIS
     Route: 048
     Dates: start: 20010503, end: 20020101
  2. BAYCOL [Concomitant]
     Indication: BLOOD CHOLESTEROL INCREASED
     Route: 048
     Dates: end: 20010815
  3. BAYCOL [Concomitant]
     Route: 048
  4. ASPIRIN [Concomitant]
     Indication: MYOCARDIAL INFARCTION
     Route: 065
  5. NITROQUICK [Concomitant]
     Indication: CHEST PAIN
     Route: 060
  6. METOPROLOL [Concomitant]
     Route: 065
     Dates: end: 20020401
  7. METOPROLOL [Concomitant]
     Route: 065
  8. METOPROLOL [Concomitant]
     Route: 065
     Dates: start: 20020601
  9. CAPTOPRIL [Concomitant]
     Route: 048
     Dates: end: 20021113
  10. CAPTOPRIL [Concomitant]
     Route: 065
  11. HYDRODIURIL [Concomitant]
     Indication: HYPERTENSION
     Route: 065
  12. CLARITIN [Concomitant]
     Indication: HYPERSENSITIVITY
     Route: 065
  13. MOTRIN [Concomitant]
     Indication: PAIN
     Route: 065
  14. ESTROGENS (UNSPECIFIED) [Concomitant]
     Route: 065
  15. ALLEGRA [Concomitant]
     Indication: HYPERSENSITIVITY
     Route: 065
  16. LIPITOR [Concomitant]
     Route: 048
     Dates: end: 20020612
  17. ALEVE [Concomitant]
     Route: 065

REACTIONS (16)
  - BACK PAIN [None]
  - CARDIAC DISORDER [None]
  - CHEST PAIN [None]
  - COW'S MILK INTOLERANCE [None]
  - EMOTIONAL DISTRESS [None]
  - FLANK PAIN [None]
  - GASTRITIS EROSIVE [None]
  - HAEMORRHOIDS [None]
  - HELICOBACTER INFECTION [None]
  - HIATUS HERNIA [None]
  - HYPERTENSION [None]
  - MYALGIA [None]
  - MYOCARDIAL INFARCTION [None]
  - NAUSEA [None]
  - PAIN IN EXTREMITY [None]
  - WEIGHT DECREASED [None]
